FAERS Safety Report 21459903 (Version 1)
Quarter: 2022Q4

REPORT INFORMATION
  Report Type: Report from Study
  Country: US (occurrence: US)
  Receive Date: 20221014
  Receipt Date: 20221014
  Transmission Date: 20230112
  Serious: Yes (Other)
  Sender: FDA-Public Use
  Company Number: US-ABBVIE-4154119

PATIENT
  Age: 58 Year
  Sex: Male

DRUGS (2)
  1. HUMIRA [Suspect]
     Active Substance: ADALIMUMAB
     Indication: Crohn^s disease
     Dosage: CF
     Route: 058
  2. HUMIRA [Suspect]
     Active Substance: ADALIMUMAB
     Dosage: CF
     Route: 058

REACTIONS (6)
  - Sinus node dysfunction [Unknown]
  - Fatigue [Unknown]
  - Pharyngitis [Recovering/Resolving]
  - Myopericarditis [Unknown]
  - Therapeutic product effect incomplete [Unknown]
  - Pericarditis [Unknown]

NARRATIVE: CASE EVENT DATE: 20220801
